FAERS Safety Report 25380599 (Version 1)
Quarter: 2025Q2

REPORT INFORMATION
  Report Type: Spontaneous
  Country: US (occurrence: US)
  Receive Date: 20250530
  Receipt Date: 20250530
  Transmission Date: 20250717
  Serious: Yes (Other)
  Sender: ALEMBIC
  Company Number: US-ALEMBIC PHARMACUETICALS LIMITED-2025SCAL000549

PATIENT

DRUGS (8)
  1. DOCETAXEL [Suspect]
     Active Substance: DOCETAXEL
     Indication: Triple positive breast cancer
     Route: 065
  2. DOCETAXEL [Suspect]
     Active Substance: DOCETAXEL
     Indication: Breast cancer stage II
  3. CARBOPLATIN [Suspect]
     Active Substance: CARBOPLATIN
     Indication: Triple positive breast cancer
     Route: 065
  4. CARBOPLATIN [Suspect]
     Active Substance: CARBOPLATIN
     Indication: Breast cancer stage II
  5. TRASTUZUMAB [Suspect]
     Active Substance: TRASTUZUMAB
     Indication: Triple positive breast cancer
     Route: 065
  6. TRASTUZUMAB [Suspect]
     Active Substance: TRASTUZUMAB
     Indication: Breast cancer stage II
  7. PERTUZUMAB [Suspect]
     Active Substance: PERTUZUMAB
     Indication: Triple positive breast cancer
     Route: 065
  8. PERTUZUMAB [Suspect]
     Active Substance: PERTUZUMAB
     Indication: Breast cancer stage II

REACTIONS (12)
  - Dermatomyositis [Recovering/Resolving]
  - Rash [Recovering/Resolving]
  - Xerosis [Recovering/Resolving]
  - Pruritus [Recovering/Resolving]
  - Burning sensation [Recovering/Resolving]
  - Periorbital swelling [Unknown]
  - Muscular weakness [Unknown]
  - Erythema [Unknown]
  - Face oedema [Unknown]
  - Rash erythematous [Recovering/Resolving]
  - Muscle strength abnormal [Unknown]
  - Blood creatine phosphokinase increased [Unknown]
